FAERS Safety Report 5064963-6 (Version None)
Quarter: 2006Q3

REPORT INFORMATION
  Report Type: 
  Country: None (occurrence: None)
  Receive Date: 20060726
  Receipt Date: 20060710
  Transmission Date: 20061208
  Serious: Yes (Hospitalization, Other)
  Sender: FDA-Public Use
  Company Number: US200605003778

PATIENT
  Age: 76 Year
  Sex: Female

DRUGS (15)
  1. FORTEO [Suspect]
     Indication: OSTEOPOROSIS
     Dosage: 20 UG
     Dates: start: 20051201
  2. FORTEO [Suspect]
  3. ELAVIL [Concomitant]
  4. THEOPHYLLINE [Concomitant]
  5. METHOTREXATE [Concomitant]
  6. FOLIC ACID [Concomitant]
  7. NEXIUM [Concomitant]
  8. ASA (ASPIRIN (ACETYLSALICYLIC ACID)) [Concomitant]
  9. ZYRTEC-D 12 HOUR [Concomitant]
  10. MULTIVITAMIN [Concomitant]
  11. OSCAL PLUS D (CALCIUM COLECALCIFEROL) [Concomitant]
  12. VITAMIN E [Concomitant]
  13. ASCORBIC ACID [Concomitant]
  14. DOCUSATE SODIUM                               STOOL SOFTNER [Concomitant]
  15. FORTEO PEN (FORTEO PEN) [Concomitant]

REACTIONS (8)
  - CARDIAC MYXOMA [None]
  - CEREBROVASCULAR ACCIDENT [None]
  - CONFUSIONAL STATE [None]
  - FALL [None]
  - INJECTION SITE PAIN [None]
  - PHARMACEUTICAL PRODUCT COMPLAINT [None]
  - SKELETAL INJURY [None]
  - TRANSIENT ISCHAEMIC ATTACK [None]
